FAERS Safety Report 8829673 (Version 1)
Quarter: 2012Q4

REPORT INFORMATION
  Report Type: Spontaneous
  Country: GB (occurrence: None)
  Receive Date: 20121004
  Receipt Date: 20121004
  Transmission Date: 20130627
  Serious: Yes (Other)
  Sender: FDA-Public Use
  Company Number: GB-1194355

PATIENT
  Sex: Female

DRUGS (1)
  1. AZOPT [Suspect]
     Indication: GLAUCOMA
     Route: 047

REACTIONS (4)
  - Depression [None]
  - Dyspnoea [None]
  - Tremor [None]
  - Tinnitus [None]
